FAERS Safety Report 10749326 (Version 1)
Quarter: 2015Q1

REPORT INFORMATION
  Report Type: Spontaneous
  Country: DE (occurrence: DE)
  Receive Date: 20150129
  Receipt Date: 20150129
  Transmission Date: 20150721
  Serious: Yes (Death, Hospitalization, Other)
  Sender: FDA-Public Use
  Company Number: DE-BRISTOL-MYERS SQUIBB COMPANY-21225164

PATIENT
  Age: 73 Year
  Sex: Male
  Weight: 114 kg

DRUGS (14)
  1. MIRTAZAPINE. [Concomitant]
     Active Substance: MIRTAZAPINE
  2. FLUTIDE [Concomitant]
     Active Substance: FLUTICASONE PROPIONATE
  3. PANTOPRAZOLE [Concomitant]
     Active Substance: PANTOPRAZOLE SODIUM
  4. SPIRONOLACTONE. [Concomitant]
     Active Substance: SPIRONOLACTONE
     Indication: HYPERKALAEMIA
  5. LENDORMIN [Concomitant]
     Active Substance: BROTIZOLAM
  6. FLUCONAZOLE. [Concomitant]
     Active Substance: FLUCONAZOLE
  7. TOREM                              /01036501/ [Concomitant]
     Active Substance: TORSEMIDE
  8. XARELTO [Concomitant]
     Active Substance: RIVAROXABAN
  9. CANDESARTAN [Concomitant]
     Active Substance: CANDESARTAN
  10. SALBUTAMOL [Concomitant]
     Active Substance: ALBUTEROL
  11. IPILIMUMAB [Suspect]
     Active Substance: IPILIMUMAB
     Indication: MALIGNANT MELANOMA
     Dosage: 3 MG/KG, UNK
     Route: 042
     Dates: start: 20140515, end: 20140718
  12. PREDNISOLONE. [Concomitant]
     Active Substance: PREDNISOLONE
  13. HEPARIN [Concomitant]
     Active Substance: HEPARIN SODIUM
  14. SEVREDOL [Concomitant]
     Active Substance: MORPHINE

REACTIONS (5)
  - Colitis [Unknown]
  - Lower gastrointestinal haemorrhage [Unknown]
  - Staphylococcal infection [Unknown]
  - Malignant neoplasm progression [Fatal]
  - Thrombophlebitis [Unknown]

NARRATIVE: CASE EVENT DATE: 20140710
